FAERS Safety Report 4433081-X (Version None)
Quarter: 2004Q3

REPORT INFORMATION
  Report Type: 
  Country: None (occurrence: None)
  Receive Date: 20040823
  Receipt Date: 20040813
  Transmission Date: 20050211
  Serious: Yes (Hospitalization)
  Sender: FDA-Public Use
  Company Number: 20593

PATIENT
  Age: 54 Year
  Sex: Male
  Weight: 131.9967 kg

DRUGS (2)
  1. NIASPAN [Suspect]
     Indication: BLOOD CHOLESTEROL INCREASED
     Dosage: 500 MG QHS PO
     Route: 048
     Dates: start: 20040322, end: 20040809
  2. ALLOPURINOL [Concomitant]

REACTIONS (2)
  - NEPHROLITHIASIS [None]
  - RENAL COLIC [None]
